FAERS Safety Report 6927719-2 (Version None)
Quarter: 2010Q3

REPORT INFORMATION
  Report Type: 
  Country: None (occurrence: None)
  Receive Date: 20100817
  Receipt Date: 20100809
  Transmission Date: 20110219
  Serious: Yes (Hospitalization)
  Sender: FDA-Public Use
  Company Number: PHHY2010US48594

PATIENT
  Sex: Female

DRUGS (1)
  1. COMBIPATCH [Suspect]
     Dosage: 50/140

REACTIONS (3)
  - ENDOMETRIAL CANCER [None]
  - HYSTERECTOMY [None]
  - POSTMENOPAUSAL HAEMORRHAGE [None]
